FAERS Safety Report 6700801-0 (Version None)
Quarter: 2010Q2

REPORT INFORMATION
  Report Type: 
  Country: None (occurrence: None)
  Receive Date: 20100428
  Receipt Date: 20100423
  Transmission Date: 20101027
  Serious: Yes (Life-Threatening, Hospitalization, Other)
  Sender: FDA-Public Use
  Company Number: US-ELI_LILLY_AND_COMPANY-US201001004326

PATIENT
  Sex: Female
  Weight: 78.005 kg

DRUGS (13)
  1. BYETTA [Suspect]
     Indication: TYPE 2 DIABETES MELLITUS
     Dosage: 5 UG, 2/D
     Route: 058
     Dates: start: 20090101, end: 20090101
  2. BYETTA [Suspect]
     Dosage: 10 UG, 2/D
     Route: 058
     Dates: start: 20090101, end: 20090101
  3. BYETTA [Suspect]
     Dosage: 10 UG, 2/D
     Route: 058
     Dates: start: 20090101, end: 20090101
  4. BYETTA [Suspect]
     Dosage: 10 UG, 2/D
     Route: 058
     Dates: start: 20090101
  5. BYETTA [Suspect]
     Dosage: 10 UG, 2/D
     Route: 058
  6. GLYBURIDE [Concomitant]
     Indication: TYPE 2 DIABETES MELLITUS
     Dosage: 7.5 MG, 2/D
     Route: 048
  7. METFORMIN [Concomitant]
  8. SIMVASTATIN [Concomitant]
     Dosage: UNK, DAILY (1/D)
     Route: 048
  9. AMBIEN [Concomitant]
     Dosage: UNK, AS NEEDED
     Route: 048
  10. PRILOSEC [Concomitant]
     Dosage: UNK, DAILY (1/D)
     Route: 048
  11. METROPIN [Concomitant]
  12. ASPIRIN [Concomitant]
     Dosage: 81 MG, DAILY (1/D)
     Route: 048
  13. METOPROLOL TARTRATE [Concomitant]
     Dosage: UNK, DAILY (1/D)
     Route: 048

REACTIONS (10)
  - AORTIC ANEURYSM [None]
  - ASTHENIA [None]
  - BLOOD GLUCOSE INCREASED [None]
  - DRUG DOSE OMISSION [None]
  - FATIGUE [None]
  - LISTLESS [None]
  - MYOCARDIAL INFARCTION [None]
  - RENAL FAILURE CHRONIC [None]
  - RESPIRATORY FAILURE [None]
  - WEIGHT DECREASED [None]
